FAERS Safety Report 16653260 (Version 3)
Quarter: 2019Q3

REPORT INFORMATION
  Report Type: Report from Study
  Country: DE (occurrence: DE)
  Receive Date: 20190731
  Receipt Date: 20190903
  Transmission Date: 20191004
  Serious: Yes (Other)
  Sender: FDA-Public Use
  Company Number: PHHY2019DE173879

PATIENT
  Sex: Female
  Weight: 127 kg

DRUGS (7)
  1. METHOTREXATE. [Concomitant]
     Active Substance: METHOTREXATE
     Indication: PSORIATIC ARTHROPATHY
     Dosage: 10 MG, QW
     Route: 058
     Dates: start: 20060613
  2. PREDNISOLON [Concomitant]
     Active Substance: PREDNISOLONE
     Indication: PSORIATIC ARTHROPATHY
     Dosage: 2 MG, QD
     Route: 048
     Dates: start: 20170420
  3. DOLOMAGON [Concomitant]
     Indication: PSORIATIC ARTHROPATHY
     Dosage: 400 MG, PRN
     Route: 048
     Dates: start: 20180815
  4. FOLIC ACID. [Concomitant]
     Active Substance: FOLIC ACID
     Indication: PROPHYLAXIS
     Dosage: 5 MG, QW
     Route: 048
     Dates: start: 20061129
  5. COSENTYX [Suspect]
     Active Substance: SECUKINUMAB
     Indication: PSORIATIC ARTHROPATHY
     Dosage: 300 MG, QW FOR INITIAL 5 APPLICATIONS
     Route: 065
     Dates: start: 20190618
  6. COSENTYX [Suspect]
     Active Substance: SECUKINUMAB
     Dosage: 300 MG, QMO
     Route: 065
  7. DOLOMAGON [Concomitant]
     Indication: PAIN

REACTIONS (1)
  - Pyelonephritis [Recovered/Resolved]

NARRATIVE: CASE EVENT DATE: 20190701
